FAERS Safety Report 4627020-6 (Version None)
Quarter: 2005Q1

REPORT INFORMATION
  Report Type: 
  Country: None (occurrence: None)
  Receive Date: 20050331
  Receipt Date: 20050321
  Transmission Date: 20050727
  Serious: Yes (Disabling, Other)
  Sender: FDA-Public Use
  Company Number: 2004106452

PATIENT
  Age: 35 Year
  Sex: Female
  Weight: 49.8957 kg

DRUGS (3)
  1. DEPO-PROVERA [Suspect]
     Indication: CONTRACEPTION
     Dosage: 150 MG (150 MG, ONE SINGLE DOSE.), INTRAMUSCULAR
     Route: 030
     Dates: start: 20041109, end: 20041109
  2. FAMCICLOVIR (FAMCICLOVIR) [Concomitant]
  3. CLOBETASOL (CLOBETASOL) [Concomitant]

REACTIONS (6)
  - AGGRESSION [None]
  - HEADACHE [None]
  - IRRITABILITY [None]
  - METRORRHAGIA [None]
  - MOOD SWINGS [None]
  - WEIGHT INCREASED [None]
